FAERS Safety Report 12915814 (Version 1)
Quarter: 2016Q4

REPORT INFORMATION
  Report Type: Spontaneous
  Country: US (occurrence: US)
  Receive Date: 20161107
  Receipt Date: 20161107
  Transmission Date: 20170207
  Serious: Yes (Other)
  Sender: FDA-Public Use
  Company Number: US-CONCORDIA PHARMACEUTICALS INC.-GSH201611-005548

PATIENT
  Age: 61 Year
  Sex: Female

DRUGS (8)
  1. HYDROXYCHLOROQUINE [Suspect]
     Active Substance: HYDROXYCHLOROQUINE
  2. ELAVIL [Suspect]
     Active Substance: AMITRIPTYLINE HYDROCHLORIDE
  3. TALWIN [Suspect]
     Active Substance: PENTAZOCINE LACTATE
  4. CODEINE [Suspect]
     Active Substance: CODEINE
  5. IMITREX [Suspect]
     Active Substance: SUMATRIPTAN SUCCINATE
  6. TORADOL [Suspect]
     Active Substance: KETOROLAC TROMETHAMINE
  7. ULTRAM [Suspect]
     Active Substance: TRAMADOL HYDROCHLORIDE
  8. MS CONTIN [Suspect]
     Active Substance: MORPHINE SULFATE

REACTIONS (2)
  - Diarrhoea [Unknown]
  - Hypersensitivity [Unknown]
